FAERS Safety Report 10024001 (Version 2)
Quarter: 2014Q2

REPORT INFORMATION
  Report Type: Spontaneous
  Country: GB (occurrence: GB)
  Receive Date: 20140320
  Receipt Date: 20140425
  Transmission Date: 20141212
  Serious: Yes (Disabling, Other)
  Sender: FDA-Public Use
  Company Number: GB-ASTRAZENECA-2014SE17133

PATIENT
  Sex: 0

DRUGS (5)
  1. BUPIVACAINE [Suspect]
     Route: 037
  2. INFUMORPH [Suspect]
     Route: 037
  3. CLONIDINE [Suspect]
     Dosage: 444.4 UG/ML AT 226.9 UG/DAY
     Route: 037
  4. HYDROMORPHONE [Suspect]
     Dosage: 33.3 MG/ML AT 17.002 MG/DAY
     Route: 037
  5. LIORESAL [Suspect]
     Dosage: 166.6 UG/ML AT 85.06 UG/DAY
     Route: 037

REACTIONS (6)
  - Impaired healing [Unknown]
  - Skin ulcer [Unknown]
  - Bladder disorder [Unknown]
  - Malaise [Unknown]
  - Angiopathy [Unknown]
  - Muscular weakness [Unknown]
